FAERS Safety Report 4869320-0 (Version None)
Quarter: 2005Q4

REPORT INFORMATION
  Report Type: 
  Country: None (occurrence: None)
  Receive Date: 20051230
  Receipt Date: 20050706
  Transmission Date: 20060501
  Serious: Yes (Death)
  Sender: FDA-Public Use
  Company Number: AT-JNJFOC-20050505330

PATIENT
  Sex: Male

DRUGS (8)
  1. TRAMADOL HYDROCHLORIDE [Suspect]
     Route: 048
  2. DIPIDOLOR [Suspect]
     Indication: DRUG USE FOR UNKNOWN INDICATION
     Dosage: 52- 76 MG DAILY
     Route: 065
  3. TRANXILIUM [Concomitant]
     Route: 065
  4. PSYCHOPAX [Concomitant]
     Route: 065
  5. PASSIFLORA EXTRACT [Concomitant]
     Route: 065
  6. REMIFENTANIL [Concomitant]
     Route: 065
  7. FRAXIPARIN [Concomitant]
     Route: 065
  8. DIPRIVAN [Concomitant]
     Route: 065

REACTIONS (2)
  - INJURY ASPHYXIATION [None]
  - VOMITING [None]
